FAERS Safety Report 19592236 (Version 3)
Quarter: 2021Q3

REPORT INFORMATION
  Report Type: Report from Study
  Country: None (occurrence: FR)
  Receive Date: 20210722
  Receipt Date: 20210818
  Transmission Date: 20211014
  Serious: Yes (Hospitalization, Other)
  Sender: FDA-Public Use
  Company Number: FR-ABBVIE-21K-056-3999047-00

PATIENT
  Age: 38 Year
  Sex: Male

DRUGS (3)
  1. DUODOPA [Suspect]
     Active Substance: CARBIDOPA\LEVODOPA
     Indication: PARKINSON^S DISEASE
     Route: 050
     Dates: start: 202011, end: 202107
  2. DUODOPA [Suspect]
     Active Substance: CARBIDOPA\LEVODOPA
     Route: 050
     Dates: start: 202107
  3. MODOPAR [Concomitant]
     Active Substance: BENSERAZIDE HYDROCHLORIDE\LEVODOPA
     Indication: PRODUCT USED FOR UNKNOWN INDICATION

REACTIONS (11)
  - Confusional state [Unknown]
  - Asthenia [Unknown]
  - Anxiety [Unknown]
  - Depression [Unknown]
  - Musculoskeletal stiffness [Recovering/Resolving]
  - Arthralgia [Unknown]
  - Apathy [Unknown]
  - Hypersomnia [Unknown]
  - Decreased appetite [Unknown]
  - Lethargy [Recovering/Resolving]
  - Hyperhidrosis [Unknown]

NARRATIVE: CASE EVENT DATE: 2021
